FAERS Safety Report 6300289-8 (Version None)
Quarter: 2009Q3

REPORT INFORMATION
  Report Type: 
  Country: None (occurrence: None)
  Receive Date: 20090803
  Receipt Date: 20090721
  Transmission Date: 20100115
  Serious: Yes (Life-Threatening, Hospitalization)
  Sender: FDA-Public Use
  Company Number: 2009AL004828

PATIENT
  Age: 86 Year
  Sex: Male

DRUGS (6)
  1. NAPROXEN [Suspect]
     Indication: GOUT
     Dosage: 250 MG; TID; PO
     Route: 048
     Dates: end: 20090626
  2. ACETYLSALICYLIC ACID [Concomitant]
  3. OMEPRAZOLE [Concomitant]
  4. DIGOXIN [Concomitant]
  5. BENDROFLUMETHIAZIDE [Concomitant]
  6. SIMVASTATIN [Concomitant]

REACTIONS (5)
  - ABDOMINAL DISCOMFORT [None]
  - DYSPNOEA [None]
  - MELAENA [None]
  - NAUSEA [None]
  - PALLOR [None]
